FAERS Safety Report 9444884 (Version 1)
Quarter: 2013Q3

REPORT INFORMATION
  Report Type: Spontaneous
  Country: ES (occurrence: ES)
  Receive Date: 20130807
  Receipt Date: 20130807
  Transmission Date: 20140515
  Serious: Yes (Hospitalization)
  Sender: FDA-Public Use
  Company Number: ES-UCBSA-093612

PATIENT
  Age: 87 Year
  Sex: Female

DRUGS (7)
  1. SEPTRIN FORTE [Suspect]
     Indication: POSTOPERATIVE WOUND INFECTION
     Dosage: 2 FD
     Route: 048
     Dates: start: 20130301, end: 20130320
  2. OMEPRAZOLE [Suspect]
     Indication: PROPHYLAXIS
     Route: 048
     Dates: start: 201301, end: 20130320
  3. RIFAMPICIN [Suspect]
     Indication: POSTOPERATIVE WOUND INFECTION
     Route: 048
     Dates: start: 20130301, end: 20130320
  4. NOLOTIL /SPA/ [Suspect]
     Indication: PAIN
     Route: 048
     Dates: start: 201302, end: 20130320
  5. PARACETAMOL [Concomitant]
     Indication: PAIN
     Route: 048
  6. HIBOR [Concomitant]
     Route: 058
     Dates: start: 201302
  7. VISCOFRESH [Concomitant]
     Route: 047

REACTIONS (1)
  - Drug reaction with eosinophilia and systemic symptoms [Recovered/Resolved]
